FAERS Safety Report 11773488 (Version 1)
Quarter: 2015Q4

REPORT INFORMATION
  Report Type: Report from Study
  Country: BR (occurrence: BR)
  Receive Date: 20151124
  Receipt Date: 20151124
  Transmission Date: 20160304
  Serious: Yes (Other)
  Sender: FDA-Public Use
  Company Number: BR-ABBVIE-15K-020-1503850-00

PATIENT
  Age: 39 Year
  Sex: Female
  Weight: 61 kg

DRUGS (5)
  1. SERTRALINE HYDROCHLORIDE. [Concomitant]
     Active Substance: SERTRALINE HYDROCHLORIDE
     Indication: DEPRESSION
     Route: 048
     Dates: start: 2009
  2. RIVOTRIL [Concomitant]
     Active Substance: CLONAZEPAM
     Indication: DEPRESSION
     Route: 048
     Dates: start: 2005
  3. PROCIMAX [Concomitant]
     Active Substance: CITALOPRAM HYDROBROMIDE
     Indication: MOOD SWINGS
     Route: 048
     Dates: start: 2005
  4. HUMIRA [Suspect]
     Active Substance: ADALIMUMAB
     Indication: PSORIATIC ARTHROPATHY
     Route: 058
     Dates: start: 20130603
  5. METHOTREXATE [Concomitant]
     Active Substance: METHOTREXATE
     Indication: PSORIATIC ARTHROPATHY
     Route: 048
     Dates: start: 2010

REACTIONS (10)
  - Arthralgia [Recovering/Resolving]
  - Drug ineffective [Not Recovered/Not Resolved]
  - Pain in extremity [Recovering/Resolving]
  - Musculoskeletal pain [Recovering/Resolving]
  - Muscle atrophy [Unknown]
  - Mobility decreased [Not Recovered/Not Resolved]
  - Limb deformity [Unknown]
  - Limb asymmetry [Not Recovered/Not Resolved]
  - Joint stiffness [Recovering/Resolving]
  - Joint warmth [Unknown]

NARRATIVE: CASE EVENT DATE: 201509
